FAERS Safety Report 22764880 (Version 3)
Quarter: 2023Q4

REPORT INFORMATION
  Report Type: Report from Study
  Country: US (occurrence: US)
  Receive Date: 20230731
  Receipt Date: 20231130
  Transmission Date: 20240109
  Serious: No
  Sender: FDA-Public Use
  Company Number: US-ACADIA PHARMACEUTICALS INC.-ACA-2023-PIM-002823

PATIENT
  Age: 88 Year
  Sex: Female

DRUGS (17)
  1. NUPLAZID [Suspect]
     Active Substance: PIMAVANSERIN TARTRATE
     Indication: Parkinson^s disease psychosis
     Dosage: 34 MILLIGRAM, QD
     Route: 048
     Dates: start: 20230524, end: 20231102
  2. ARIPIPRAZOLE [Concomitant]
     Active Substance: ARIPIPRAZOLE
  3. ASPIRIN [Concomitant]
     Active Substance: ASPIRIN
  4. PRASTERONE [Concomitant]
     Active Substance: PRASTERONE
  5. DONEPEZIL [Concomitant]
     Active Substance: DONEPEZIL
  6. DULOXETINE [Concomitant]
     Active Substance: DULOXETINE
  7. FOLIC ACID [Concomitant]
     Active Substance: FOLIC ACID
  8. FUROSEMIDE [Concomitant]
     Active Substance: FUROSEMIDE
  9. LEVOTHYROXINE [Concomitant]
     Active Substance: LEVOTHYROXINE
  10. LOSARTAN [Concomitant]
     Active Substance: LOSARTAN
  11. LOVASTATIN [Concomitant]
     Active Substance: LOVASTATIN
  12. MEMANTINE [Concomitant]
     Active Substance: MEMANTINE
  13. OMEPRAZOLE [Concomitant]
     Active Substance: OMEPRAZOLE
  14. POTASSIUM ACETATE [Concomitant]
     Active Substance: POTASSIUM ACETATE
  15. PROBIOTICS NOS [Concomitant]
     Active Substance: PROBIOTICS NOS
  16. CYANOCOBALAMIN [Concomitant]
     Active Substance: CYANOCOBALAMIN
  17. VITAMIN D NOS [Concomitant]
     Active Substance: VITAMIN D NOS

REACTIONS (4)
  - Treatment noncompliance [Not Recovered/Not Resolved]
  - Visual impairment [Not Recovered/Not Resolved]
  - Hallucination [Not Recovered/Not Resolved]
  - Drug ineffective [Recovered/Resolved]

NARRATIVE: CASE EVENT DATE: 20231010
